FAERS Safety Report 8573912-5 (Version None)
Quarter: 2012Q2

REPORT INFORMATION
  Report Type: 
  Country: None (occurrence: None)
  Receive Date: 20120423
  Receipt Date: 20100504
  Transmission Date: 20120825
  Serious: Yes (Other)
  Sender: FDA-Public Use
  Company Number: PHHY2010US27660

PATIENT
  Age: 75 Year
  Sex: Male
  Weight: 67.1 kg

DRUGS (1)
  1. EXJADE [Suspect]
     Dosage: 1000 MG, QD, ORAL : 500 MG, QD, ORAL
     Route: 048

REACTIONS (2)
  - RENAL FAILURE [None]
  - SERUM FERRITIN INCREASED [None]
